FAERS Safety Report 25612647 (Version 4)
Quarter: 2025Q3

REPORT INFORMATION
  Report Type: Spontaneous
  Country: US (occurrence: US)
  Receive Date: 20250728
  Receipt Date: 20250827
  Transmission Date: 20251021
  Serious: No
  Sender: PFIZER
  Company Number: US-PFIZER INC-202500147580

PATIENT
  Age: 13 Year
  Sex: Male
  Weight: 40.816 kg

DRUGS (1)
  1. GENOTROPIN [Suspect]
     Active Substance: SOMATROPIN
     Indication: Growth hormone deficiency
     Dosage: 2MG OR ML, NOT SURE OF DOSAGE UNITS BUT 2.0 IS WHAT PEN SAYS, EVERY NIGHT BEFORE BED

REACTIONS (4)
  - Device leakage [Unknown]
  - Device breakage [Unknown]
  - Drug dose omission by device [Unknown]
  - Device material issue [Unknown]
